FAERS Safety Report 7500308-7 (Version None)
Quarter: 2011Q2

REPORT INFORMATION
  Report Type: 
  Country: None (occurrence: None)
  Receive Date: 20110524
  Receipt Date: 20100429
  Transmission Date: 20111010
  Serious: No
  Sender: FDA-Public Use
  Company Number: US-NOVEN-ALL1-2010-02560

PATIENT

DRUGS (1)
  1. DAYTRANA [Suspect]
     Dosage: UNK, UNKNOWN
     Route: 062

REACTIONS (8)
  - ANGER [None]
  - MOOD ALTERED [None]
  - INITIAL INSOMNIA [None]
  - DECREASED APPETITE [None]
  - MOOD SWINGS [None]
  - AGGRESSION [None]
  - DEPRESSED MOOD [None]
  - HOSTILITY [None]
